FAERS Safety Report 5978062-X (Version None)
Quarter: 2008Q4

REPORT INFORMATION
  Report Type: 
  Country: None (occurrence: None)
  Receive Date: 20081203
  Receipt Date: 20081120
  Transmission Date: 20090506
  Serious: Yes (Hospitalization)
  Sender: FDA-Public Use
  Company Number: JP-GENENTECH-268514

PATIENT
  Sex: Male
  Weight: 57.9 kg

DRUGS (4)
  1. BEVACIZUMAB [Suspect]
     Indication: COLORECTAL CANCER METASTATIC
     Dosage: 310 MG, Q2W
     Route: 041
     Dates: start: 20080701, end: 20081111
  2. TS-1 [Suspect]
     Indication: COLORECTAL CANCER METASTATIC
     Dosage: 50 MG, BID
     Route: 048
     Dates: start: 20080701, end: 20081110
  3. IRINOTECAN HCL [Suspect]
     Indication: COLORECTAL CANCER METASTATIC
     Dosage: 160 MG, Q2W
     Route: 041
     Dates: start: 20080701, end: 20081111
  4. GRANISETRON [Concomitant]
     Indication: DRUG USE FOR UNKNOWN INDICATION
     Dosage: UNK
     Dates: start: 20080701, end: 20080909

REACTIONS (3)
  - DIARRHOEA [None]
  - RASH [None]
  - STOMATITIS [None]
